FAERS Safety Report 8106753-3 (Version None)
Quarter: 2012Q1

REPORT INFORMATION
  Report Type: 
  Country: None (occurrence: None)
  Receive Date: 20120130
  Receipt Date: 20120116
  Transmission Date: 20120608
  Serious: Yes (Death, Life-Threatening, Hospitalization, Other)
  Sender: FDA-Public Use
  Company Number: 2012MA000791

PATIENT
  Sex: Female
  Weight: 79.3795 kg

DRUGS (6)
  1. CALCIUM [Concomitant]
  2. PREDNISONE [Concomitant]
  3. NEBULIZER [Concomitant]
  4. POTASSIUM [Concomitant]
  5. DIGOXIN [Suspect]
     Indication: CARDIAC DISORDER
     Dosage: 0.125 MG;QD;PO
     Route: 048
     Dates: end: 20080412
  6. RANTIDINE [Concomitant]

REACTIONS (7)
  - NAUSEA [None]
  - SEPTIC SHOCK [None]
  - PNEUMONIA [None]
  - FEELING ABNORMAL [None]
  - PRODUCT MEASURED POTENCY ISSUE [None]
  - EMPHYSEMA [None]
  - VOMITING [None]
